FAERS Safety Report 9520298 (Version 1)
Quarter: 2013Q3

REPORT INFORMATION
  Report Type: Spontaneous
  Country: AT (occurrence: AT)
  Receive Date: 20130912
  Receipt Date: 20130912
  Transmission Date: 20140515
  Serious: Yes (Hospitalization)
  Sender: FDA-Public Use
  Company Number: ALCN2013AT004600

PATIENT
  Age: 15 Year
  Sex: Male
  Weight: 65 kg

DRUGS (1)
  1. CYCLOPENTOLATE HCL [Suspect]
     Dosage: 1 GTT, ONCE/SINGLE
     Route: 047
     Dates: start: 20130830

REACTIONS (4)
  - Circulatory collapse [Recovered/Resolved]
  - Muscle spasms [Recovered/Resolved]
  - Vision blurred [Recovered/Resolved]
  - Nausea [Recovered/Resolved]
